FAERS Safety Report 23262060 (Version 1)
Quarter: 2023Q4

REPORT INFORMATION
  Report Type: Spontaneous
  Country: DE (occurrence: DE)
  Receive Date: 20231205
  Receipt Date: 20231205
  Transmission Date: 20240110
  Serious: Yes (Other)
  Sender: FDA-Public Use
  Company Number: DE-009507513-2311DEU010994

PATIENT
  Age: 68 Year

DRUGS (3)
  1. PEMBROLIZUMAB [Suspect]
     Active Substance: PEMBROLIZUMAB
     Indication: Metastatic renal cell carcinoma
     Dosage: UNK
  2. AXITINIB [Suspect]
     Active Substance: AXITINIB
     Indication: Metastatic renal cell carcinoma
     Dosage: UNK
  3. ENOXAPARIN SODIUM [Suspect]
     Active Substance: ENOXAPARIN SODIUM
     Indication: Diverticulum
     Dosage: UNK

REACTIONS (4)
  - Pulmonary embolism [Unknown]
  - Deep vein thrombosis [Unknown]
  - Lower gastrointestinal haemorrhage [Unknown]
  - Diverticulum [Unknown]
